FAERS Safety Report 9994994 (Version 1)
Quarter: 2014Q1

REPORT INFORMATION
  Report Type: Spontaneous
  Country: US (occurrence: None)
  Receive Date: 20140218
  Receipt Date: 20140218
  Transmission Date: 20141002
  Serious: No
  Sender: FDA-Public Use
  Company Number: 1000051981

PATIENT
  Age: 57 Year
  Sex: Female

DRUGS (5)
  1. VIIBRYD [Suspect]
     Indication: DEPRESSION
     Route: 048
     Dates: start: 2011, end: 2011
  2. RISPERIDONE [Concomitant]
  3. TEMAZEPAM(TEMAZEPAM)(TEMAZEPAM) [Concomitant]
  4. LAMICTAL(LAMOTRIGINE)(LAMOTRIGINE) [Concomitant]
  5. WELLBUTRIN(BUPROPION HYDROCHLORIDE)(BUPROPION HYDROCHLORIDE) [Concomitant]

REACTIONS (2)
  - Dizziness [None]
  - Hyperhidrosis [None]
